FAERS Safety Report 4897186-1 (Version None)
Quarter: 2006Q1

REPORT INFORMATION
  Report Type: 
  Country: None (occurrence: None)
  Receive Date: 20060131
  Receipt Date: 20060123
  Transmission Date: 20060701
  Serious: Yes (Other)
  Sender: FDA-Public Use
  Company Number: GB-MERCK-0601GBR00117

PATIENT
  Age: 55 Year
  Sex: Male
  Weight: 83 kg

DRUGS (2)
  1. ZETIA [Suspect]
     Indication: HYPERCHOLESTEROLAEMIA
     Route: 048
     Dates: start: 20040621, end: 20051222
  2. ASPIRIN [Concomitant]
     Route: 048
     Dates: start: 20010612

REACTIONS (1)
  - HAEMATOSPERMIA [None]
